FAERS Safety Report 8599424-0 (Version None)
Quarter: 2012Q3

REPORT INFORMATION
  Report Type: 
  Country: None (occurrence: None)
  Receive Date: 20120816
  Receipt Date: 20120814
  Transmission Date: 20120928
  Serious: Yes (Other)
  Sender: FDA-Public Use
  Company Number: US-BAYER-2012-077741

PATIENT
  Age: 70 Year
  Sex: Female

DRUGS (3)
  1. BETASERON [Suspect]
     Indication: RELAPSING-REMITTING MULTIPLE SCLEROSIS
     Dosage: UNK
     Route: 058
     Dates: start: 19940312, end: 20031231
  2. BETASERON [Suspect]
     Dosage: UNK
     Route: 058
     Dates: start: 20050601, end: 20100301
  3. BETASERON [Suspect]
     Dosage: 8 MIU, QOD
     Route: 058
     Dates: start: 20101115, end: 20120101

REACTIONS (6)
  - SKIN ULCER [None]
  - INJECTION SITE SWELLING [None]
  - INJECTION SITE REACTION [None]
  - ERYTHEMA [None]
  - INJECTION SITE ERYTHEMA [None]
  - OEDEMA PERIPHERAL [None]
